FAERS Safety Report 10008308 (Version 1)
Quarter: 2014Q1

REPORT INFORMATION
  Report Type: Spontaneous
  Country: US (occurrence: None)
  Receive Date: 20140311
  Receipt Date: 20140311
  Transmission Date: 20141002
  Serious: Yes (Other)
  Sender: FDA-Public Use
  Company Number: FK201400687

PATIENT
  Age: 59 Year
  Sex: Male

DRUGS (2)
  1. PROTAMINE SULFATE [Suspect]
     Indication: ALLERGY TEST
     Route: 023
  2. HEPARIN (HEPARIN) [Concomitant]

REACTIONS (5)
  - Anaphylactic reaction [None]
  - Pruritus [None]
  - Cough [None]
  - Wheezing [None]
  - Refusal of treatment by patient [None]
